FAERS Safety Report 21205259 (Version 1)
Quarter: 2022Q3

REPORT INFORMATION
  Report Type: Spontaneous
  Country: US (occurrence: None)
  Receive Date: 20220812
  Receipt Date: 20220812
  Transmission Date: 20221027
  Serious: No
  Sender: FDA-Public Use
  Company Number: US-Galen Specialty Pharma US LLC-AE-2021-0701

PATIENT
  Sex: Female

DRUGS (1)
  1. SYNERA [Suspect]
     Active Substance: LIDOCAINE\TETRACAINE
     Dosage: SINGLE PATCH
     Route: 061

REACTIONS (2)
  - Drug ineffective [Unknown]
  - Product quality issue [Unknown]
